FAERS Safety Report 7780638-4 (Version None)
Quarter: 2011Q3

REPORT INFORMATION
  Report Type: 
  Country: None (occurrence: None)
  Receive Date: 20110927
  Receipt Date: 20110207
  Transmission Date: 20111222
  Serious: No
  Sender: FDA-Public Use
  Company Number: US-BRISTOL-MYERS SQUIBB COMPANY-15505431

PATIENT
  Sex: Female

DRUGS (2)
  1. DIOVAN [Suspect]
  2. AVAPRO [Suspect]
     Indication: HYPERTENSION
     Dosage: ONE YEAR AGO
     Route: 048

REACTIONS (6)
  - SOMNOLENCE [None]
  - FEELING ABNORMAL [None]
  - AMNESIA [None]
  - CONFUSIONAL STATE [None]
  - DISORIENTATION [None]
  - DIZZINESS [None]
